FAERS Safety Report 9441150 (Version 2)
Quarter: 2013Q3

REPORT INFORMATION
  Report Type: Spontaneous
  Country: ES (occurrence: ES)
  Receive Date: 20130805
  Receipt Date: 20130919
  Transmission Date: 20140515
  Serious: Yes (Other)
  Sender: FDA-Public Use
  Company Number: ES-GLAXOSMITHKLINE-B0913042A

PATIENT
  Age: 22 Year
  Sex: Male

DRUGS (4)
  1. TROBALT [Suspect]
     Indication: EPILEPSY
     Route: 048
     Dates: start: 2012, end: 20130730
  2. CLONAZEPAM [Concomitant]
     Indication: PARTIAL SEIZURES
  3. DEPAKINE [Concomitant]
     Indication: EPILEPSY
  4. VIMPAT [Concomitant]
     Indication: PARTIAL SEIZURES

REACTIONS (3)
  - Urinary retention [Unknown]
  - Retinal pigmentation [Unknown]
  - Oedema peripheral [Unknown]
